FAERS Safety Report 7979101-7 (Version None)
Quarter: 2011Q4

REPORT INFORMATION
  Report Type: 
  Country: None (occurrence: None)
  Receive Date: 20111214
  Receipt Date: 20111209
  Transmission Date: 20120403
  Serious: No
  Sender: FDA-Public Use
  Company Number: US-PFIZER INC-2011301184

PATIENT
  Sex: Female
  Weight: 58.957 kg

DRUGS (2)
  1. FLECTOR [Suspect]
     Indication: MUSCLE DISORDER
  2. FLECTOR [Suspect]
     Indication: ARTHRITIS
     Dosage: UNK, AS NEEDED
     Dates: start: 20111024, end: 20111024

REACTIONS (3)
  - APPLICATION SITE PAIN [None]
  - NAUSEA [None]
  - RASH [None]
